FAERS Safety Report 19231884 (Version 1)
Quarter: 2021Q2

REPORT INFORMATION
  Report Type: Spontaneous
  Country: CA (occurrence: CA)
  Receive Date: 20210507
  Receipt Date: 20210507
  Transmission Date: 20210717
  Serious: Yes (Other)
  Sender: FDA-Public Use
  Company Number: CA-PFIZER INC-2021503641

PATIENT
  Age: 50 Year
  Sex: Female

DRUGS (6)
  1. METHOTREXATE SODIUM. [Suspect]
     Active Substance: METHOTREXATE SODIUM
     Indication: RHEUMATOID ARTHRITIS
     Dosage: 20 MG, WEEKLY
     Route: 048
  2. ETHINYL ESTRADIOL [Concomitant]
     Active Substance: ETHINYL ESTRADIOL
     Dosage: 20 UG, FREQUENCY NOT AVAILABLE
     Route: 065
  3. LEVONORGESTREL. [Concomitant]
     Active Substance: LEVONORGESTREL
     Dosage: 100 UG, FREQUENCY NOT AVAILABLE
     Route: 065
  4. SULFASALAZINE. [Suspect]
     Active Substance: SULFASALAZINE
     Dosage: 1 DF
     Route: 065
  5. FERROUS SULFATE. [Concomitant]
     Active Substance: FERROUS SULFATE
     Dosage: 300 MG, 2X/DAY
  6. FOLIC ACID. [Concomitant]
     Active Substance: FOLIC ACID
     Dosage: 5 MG, 2X/WEEK
     Route: 048

REACTIONS (13)
  - Uterine leiomyoma [Not Recovered/Not Resolved]
  - Headache [Not Recovered/Not Resolved]
  - Tinnitus [Not Recovered/Not Resolved]
  - Night sweats [Unknown]
  - Hypothyroidism [Not Recovered/Not Resolved]
  - Vertigo [Unknown]
  - Tenderness [Unknown]
  - Polyarthritis [Not Recovered/Not Resolved]
  - Uterine enlargement [Unknown]
  - Pain in extremity [Not Recovered/Not Resolved]
  - Anxiety [Unknown]
  - Arthralgia [Not Recovered/Not Resolved]
  - Thyroiditis [Not Recovered/Not Resolved]
